FAERS Safety Report 11224356 (Version 1)
Quarter: 2015Q2

REPORT INFORMATION
  Report Type: Spontaneous
  Country: US (occurrence: None)
  Receive Date: 20150626
  Receipt Date: 20150626
  Transmission Date: 20150821
  Serious: Yes (Hospitalization)
  Sender: FDA-Public Use
  Company Number: None

PATIENT
  Age: 65 Year
  Sex: Male
  Weight: 98.43 kg

DRUGS (19)
  1. HARVONI [Suspect]
     Active Substance: LEDIPASVIR\SOFOSBUVIR
     Indication: HEPATITIS C
     Dosage: 400/90 1X DAILY ORAL
     Route: 048
     Dates: start: 20150302
  2. MYCELEX [Concomitant]
     Active Substance: CLOTRIMAZOLE
  3. COLACE [Concomitant]
     Active Substance: DOCUSATE SODIUM
  4. ROXICODONE [Concomitant]
     Active Substance: OXYCODONE HYDROCHLORIDE
  5. DELTASONE [Concomitant]
     Active Substance: PREDNISONE
  6. LISINOPRIL. [Concomitant]
     Active Substance: LISINOPRIL
  7. MAGNESIUM OXIDE. [Concomitant]
     Active Substance: MAGNESIUM OXIDE
  8. ZOLOFT [Concomitant]
     Active Substance: SERTRALINE HYDROCHLORIDE
  9. ASPIRIN. [Concomitant]
     Active Substance: ASPIRIN
  10. PROTONIX [Concomitant]
     Active Substance: PANTOPRAZOLE SODIUM
  11. LOPRESSOR [Concomitant]
     Active Substance: METOPROLOL TARTRATE
  12. MIRALAX [Concomitant]
     Active Substance: POLYETHYLENE GLYCOL 3350
  13. SENOKOT [Concomitant]
     Active Substance: SENNOSIDES
  14. PROGRAF [Concomitant]
     Active Substance: TACROLIMUS\TACROLIMUS ANHYDROUS
  15. ALPRAZOLAM. [Concomitant]
     Active Substance: ALPRAZOLAM
  16. NOVOLOG [Concomitant]
     Active Substance: INSULIN ASPART
  17. LEVEMIR [Concomitant]
     Active Substance: INSULIN DETEMIR
  18. CELLCEPT [Concomitant]
     Active Substance: MYCOPHENOLATE MOFETIL\MYCOPHENOLATE MOFETIL HYDROCHLORIDE
  19. VALCYTE [Concomitant]
     Active Substance: VALGANCICLOVIR HYDROCHLORIDE

REACTIONS (2)
  - Pneumonia [None]
  - Atelectasis [None]

NARRATIVE: CASE EVENT DATE: 20150522
